FAERS Safety Report 9384009 (Version 1)
Quarter: 2013Q3

REPORT INFORMATION
  Report Type: Report from Study
  Country: CA (occurrence: CA)
  Receive Date: 20130705
  Receipt Date: 20130705
  Transmission Date: 20140515
  Serious: Yes (Hospitalization)
  Sender: FDA-Public Use
  Company Number: CA-JNJFOC-20130611645

PATIENT
  Sex: Female
  Weight: 53 kg

DRUGS (4)
  1. REMICADE [Suspect]
     Indication: PSORIATIC ARTHROPATHY
     Dosage: 3RD INFUSION DOSE AT 4 WEEKS MARK
     Route: 042
     Dates: start: 2013
  2. REMICADE [Suspect]
     Indication: PSORIATIC ARTHROPATHY
     Dosage: EMERGENCY DOSE
     Route: 042
     Dates: start: 201306
  3. REMICADE [Suspect]
     Indication: PSORIATIC ARTHROPATHY
     Dosage: 1ST INFUSION DOSE
     Route: 042
     Dates: start: 20130329
  4. REMICADE [Suspect]
     Indication: PSORIATIC ARTHROPATHY
     Dosage: 2ND INFUSION DOSE
     Route: 042
     Dates: start: 2013

REACTIONS (2)
  - Uveitis [Unknown]
  - Psoriatic arthropathy [Unknown]
